FAERS Safety Report 21481664 (Version 1)
Quarter: 2022Q4

REPORT INFORMATION
  Report Type: Spontaneous
  Country: FR (occurrence: FR)
  Receive Date: 20221020
  Receipt Date: 20221020
  Transmission Date: 20230112
  Serious: Yes (Other)
  Sender: FDA-Public Use
  Company Number: FR-AFSSAPS-AVCN20220834

PATIENT
  Age: 24 Year
  Sex: Male

DRUGS (1)
  1. TRAMADOL [Suspect]
     Active Substance: TRAMADOL
     Indication: Product used for unknown indication
     Dosage: 2.2 GRAM 9(2.2G BETWEEN 10 A.M. AND 7 P.M))
     Route: 048
     Dates: start: 20220908, end: 20220908

REACTIONS (5)
  - Agitation [Recovering/Resolving]
  - Drug abuse [Not Recovered/Not Resolved]
  - Ocular hyperaemia [Recovering/Resolving]
  - Somnolence [Recovered/Resolved]
  - Seizure [Recovered/Resolved]

NARRATIVE: CASE EVENT DATE: 20220908
